FAERS Safety Report 7271839-2 (Version None)
Quarter: 2011Q1

REPORT INFORMATION
  Report Type: 
  Country: None (occurrence: None)
  Receive Date: 20110203
  Receipt Date: 20110124
  Transmission Date: 20110831
  Serious: Yes (Hospitalization)
  Sender: FDA-Public Use
  Company Number: FR-MEDIMMUNE-MEDI-0012236

PATIENT
  Sex: Female
  Weight: 9.6 kg

DRUGS (2)
  1. SYNAGIS [Suspect]
     Route: 030
     Dates: start: 20100204, end: 20101202
  2. SYNAGIS [Suspect]
     Indication: CARDIAC DISORDER

REACTIONS (4)
  - MALAISE [None]
  - NASOPHARYNGITIS [None]
  - HYPOTONIA [None]
  - PALLOR [None]
